FAERS Safety Report 8071768-0 (Version None)
Quarter: 2012Q1

REPORT INFORMATION
  Report Type: 
  Country: None (occurrence: None)
  Receive Date: 20120125
  Receipt Date: 20120118
  Transmission Date: 20120608
  Serious: Yes (Hospitalization)
  Sender: FDA-Public Use
  Company Number: US-ROXANE LABORATORIES, INC.-2009-RO-00271RO

PATIENT
  Age: 34 Year
  Sex: Male

DRUGS (11)
  1. DEXTRAN INJ [Concomitant]
  2. ANALGESIC [Concomitant]
  3. METHADONE HCL [Suspect]
     Dosage: 100 MG
     Route: 013
  4. HEPARIN [Concomitant]
  5. DEXAMETHASONE [Concomitant]
     Route: 042
  6. HYDROMORPHONE HCL [Concomitant]
     Indication: PAIN
     Route: 042
  7. NIFEDIPINE [Concomitant]
     Route: 048
  8. SODIUM BICARBONATE [Concomitant]
  9. HEPARIN [Concomitant]
  10. COUMADIN [Concomitant]
  11. ENOXAPARIN [Concomitant]
     Indication: INTERNATIONAL NORMALISED RATIO DECREASED

REACTIONS (4)
  - INCORRECT ROUTE OF DRUG ADMINISTRATION [None]
  - SINUS TACHYCARDIA [None]
  - PERIPHERAL ISCHAEMIA [None]
  - RHABDOMYOLYSIS [None]
